FAERS Safety Report 11090362 (Version 1)
Quarter: 2015Q2

REPORT INFORMATION
  Report Type: Spontaneous
  Country: US (occurrence: None)
  Receive Date: 20150504
  Receipt Date: 20150504
  Transmission Date: 20150821
  Serious: Yes (Disabling)
  Sender: FDA-Public Use
  Company Number: None

PATIENT
  Age: 35 Year
  Sex: Female
  Weight: 61.69 kg

DRUGS (5)
  1. DOXYCYCLINE 100MG [Suspect]
     Active Substance: DOXYCYCLINE
     Indication: BACTERIAL INFECTION
     Dosage: 1 PILL
     Route: 048
  2. FLAXSEED [Concomitant]
     Active Substance: FLAX SEED
  3. GINSENG [Concomitant]
     Active Substance: ASIAN GINSENG
  4. SPIRULINA [Concomitant]
     Active Substance: SPIRULINA
  5. VITAMIN B COMPLEX [Concomitant]
     Active Substance: CYANOCOBALAMIN\DEXPANTHENOL\NIACINAMIDE\PYRIDOXINE HYDROCHLORIDE\RIBOFLAVIN 5^-PHOSPHATE SODIUM\THIAMINE HYDROCHLORIDE\VITAMIN B COMPLEX

REACTIONS (4)
  - Hyperaesthesia [None]
  - Pain in extremity [None]
  - Photophobia [None]
  - Neuralgia [None]

NARRATIVE: CASE EVENT DATE: 20150415
